FAERS Safety Report 10175971 (Version 1)
Quarter: 2014Q2

REPORT INFORMATION
  Report Type: Spontaneous
  Country: GB (occurrence: GB)
  Receive Date: 20140516
  Receipt Date: 20140516
  Transmission Date: 20141212
  Serious: Yes (Disabling, Other)
  Sender: FDA-Public Use
  Company Number: GB-ACCORD-023576

PATIENT
  Age: 41 Year
  Sex: Male
  Weight: 82.55 kg

DRUGS (1)
  1. FINASTERIDE [Suspect]
     Indication: PRODUCT USED FOR UNKNOWN INDICATION
     Route: 048
     Dates: start: 20100801, end: 20131023

REACTIONS (6)
  - Mydriasis [Unknown]
  - Dizziness [Unknown]
  - Balance disorder [Unknown]
  - Vestibular disorder [Unknown]
  - Nerve injury [Recovering/Resolving]
  - Multiple sclerosis [Unknown]
